FAERS Safety Report 7080704-5 (Version None)
Quarter: 2010Q4

REPORT INFORMATION
  Report Type: 
  Country: None (occurrence: None)
  Receive Date: 20101103
  Receipt Date: 20101022
  Transmission Date: 20110411
  Serious: Yes (Hospitalization, Congenital Anomaly)
  Sender: FDA-Public Use
  Company Number: FR-SANOFI-AVENTIS-2010SA064539

PATIENT
  Age: 0 Day
  Sex: Female
  Weight: 3.95 kg

DRUGS (3)
  1. ASPEGIC 1000 [Suspect]
     Route: 064
     Dates: end: 20100725
  2. LOVENOX [Suspect]
     Route: 064
     Dates: end: 20100828
  3. LAMOTRIGINE [Suspect]
     Route: 064
     Dates: start: 20080101, end: 20100725

REACTIONS (2)
  - ANAL ATRESIA [None]
  - DRUG EXPOSURE DURING PREGNANCY [None]
